FAERS Safety Report 22605738 (Version 1)
Quarter: 2023Q2

REPORT INFORMATION
  Report Type: Spontaneous
  Country: US (occurrence: US)
  Receive Date: 20230615
  Receipt Date: 20230615
  Transmission Date: 20230721
  Serious: Yes (Other)
  Sender: FDA-Public Use
  Company Number: US-SA-SAC20230612001151

PATIENT
  Age: 41 Year
  Sex: Male

DRUGS (2)
  1. ALPROLIX [Suspect]
     Active Substance: EFTRENONACOG ALFA
     Dosage: 5000 IU (+/-10%) (STRENGTH: 5258 UNITS)
     Route: 042
  2. ALPROLIX [Suspect]
     Active Substance: EFTRENONACOG ALFA
     Dosage: 5000 IU (+/-10%) (STRENGTH: 5258 UNITS)
     Route: 042

REACTIONS (4)
  - Ankle operation [Unknown]
  - Procedural pain [Unknown]
  - Impaired healing [Unknown]
  - Coagulation factor IX level decreased [Unknown]

NARRATIVE: CASE EVENT DATE: 20220101
